FAERS Safety Report 17731219 (Version 1)
Quarter: 2020Q2

REPORT INFORMATION
  Report Type: Not Available
  Country: US (occurrence: US)
  Receive Date: 20200430
  Receipt Date: 20200430
  Transmission Date: 20200714
  Serious: Yes (Hospitalization)
  Sender: FDA-Public Use
  Company Number: US-NEUROCRINE BIOSCIENCES INC.-2020NBI01385

PATIENT
  Sex: Female

DRUGS (11)
  1. MELOXICAM. [Concomitant]
     Active Substance: MELOXICAM
  2. CLONIDINE. [Concomitant]
     Active Substance: CLONIDINE
  3. LEVOTHYROXINE. [Concomitant]
     Active Substance: LEVOTHYROXINE
  4. INGREZZA [Suspect]
     Active Substance: VALBENAZINE
     Indication: TARDIVE DYSKINESIA
     Dosage: 80 MG AND 40 MG CAPSULE
     Route: 048
     Dates: start: 20191106
  5. METFORMIN [Concomitant]
     Active Substance: METFORMIN HYDROCHLORIDE
  6. TRAZODONE [Concomitant]
     Active Substance: TRAZODONE HYDROCHLORIDE
  7. LISINOPRIL. [Concomitant]
     Active Substance: LISINOPRIL
  8. NALTREXONE [Concomitant]
     Active Substance: NALTREXONE
  9. TOPIRAMATE. [Concomitant]
     Active Substance: TOPIRAMATE
  10. FLUOXETINE [Concomitant]
     Active Substance: FLUOXETINE HYDROCHLORIDE
  11. WELLBUTRIN [Concomitant]
     Active Substance: BUPROPION HYDROCHLORIDE

REACTIONS (3)
  - Prescribed overdose [Unknown]
  - Balance disorder [Recovered/Resolved]
  - Fall [Recovered/Resolved]
